FAERS Safety Report 18568486 (Version 1)
Quarter: 2020Q4

REPORT INFORMATION
  Report Type: Spontaneous
  Country: US (occurrence: US)
  Receive Date: 20201202
  Receipt Date: 20201202
  Transmission Date: 20210114
  Serious: No
  Sender: FDA-Public Use
  Company Number: US-ELI_LILLY_AND_COMPANY-US202011006231

PATIENT
  Sex: Female

DRUGS (2)
  1. EMGALITY [Suspect]
     Active Substance: GALCANEZUMAB-GNLM
     Indication: PRODUCT USED FOR UNKNOWN INDICATION
     Dosage: 120 MG, UNKNOWN
     Route: 065
     Dates: start: 201905
  2. MAXALT [Concomitant]
     Active Substance: RIZATRIPTAN BENZOATE
     Indication: PRODUCT USED FOR UNKNOWN INDICATION

REACTIONS (10)
  - Decreased activity [Unknown]
  - Migraine [Unknown]
  - Visual impairment [Unknown]
  - Memory impairment [Unknown]
  - Drug ineffective [Unknown]
  - Dysphemia [Unknown]
  - Asthenia [Unknown]
  - Thought blocking [Unknown]
  - Dizziness [Unknown]
  - Dark circles under eyes [Unknown]
